FAERS Safety Report 8022730-5 (Version None)
Quarter: 2012Q1

REPORT INFORMATION
  Report Type: 
  Country: None (occurrence: None)
  Receive Date: 20120104
  Receipt Date: 20111222
  Transmission Date: 20120608
  Serious: Yes (Disabling)
  Sender: FDA-Public Use
  Company Number: US-UCBSA-048380

PATIENT
  Age: 52 Year
  Sex: Female

DRUGS (2)
  1. CIMZIA [Suspect]
     Indication: RHEUMATOID ARTHRITIS
     Route: 058
     Dates: start: 20111025
  2. LEFLUNOMIDE [Concomitant]
     Dates: start: 20110101

REACTIONS (3)
  - BRADYPHRENIA [None]
  - DIZZINESS [None]
  - MEMORY IMPAIRMENT [None]
